FAERS Safety Report 8959580 (Version 1)
Quarter: 2012Q4

REPORT INFORMATION
  Report Type: Report from Study
  Country: DE (occurrence: DE)
  Receive Date: 20121211
  Receipt Date: 20121211
  Transmission Date: 20130627
  Serious: Yes (Hospitalization)
  Sender: FDA-Public Use
  Company Number: DE-JNJFOC-20121204116

PATIENT
  Age: 72 Year
  Sex: Male
  Weight: 74 kg

DRUGS (11)
  1. SIMPONI [Suspect]
     Indication: RHEUMATOID ARTHRITIS
     Route: 058
     Dates: end: 20120923
  2. SIMPONI [Suspect]
     Indication: RHEUMATOID ARTHRITIS
     Route: 058
     Dates: start: 20120601, end: 20120630
  3. ASS [Concomitant]
     Route: 048
  4. CLOPIDOGREL [Concomitant]
     Route: 048
  5. SIMVASTATIN [Concomitant]
     Route: 048
  6. OMEPRAZOLE [Concomitant]
     Route: 048
  7. FOLIC ACID [Concomitant]
     Route: 048
  8. METOPROLOL [Concomitant]
     Route: 048
  9. ENALAPRIL [Concomitant]
     Route: 048
  10. METFORMIN [Concomitant]
     Route: 048
  11. TRIMIPRAMINE [Concomitant]
     Route: 048

REACTIONS (2)
  - Benign neoplasm [Recovered/Resolved]
  - Atrial fibrillation [Unknown]
